FAERS Safety Report 7789259-0 (Version None)
Quarter: 2011Q3

REPORT INFORMATION
  Report Type: 
  Country: None (occurrence: None)
  Receive Date: 20110930
  Receipt Date: 20110926
  Transmission Date: 20111222
  Serious: Yes (Other)
  Sender: FDA-Public Use
  Company Number: US-BRACCO-005559

PATIENT
  Sex: Female
  Weight: 58.05 kg

DRUGS (86)
  1. PROHANCE [Suspect]
     Indication: NUCLEAR MAGNETIC RESONANCE IMAGING
  2. CONTRAST MEDIA [Suspect]
     Indication: NUCLEAR MAGNETIC RESONANCE IMAGING
     Dates: start: 20020423, end: 20020423
  3. CONTRAST MEDIA [Suspect]
     Indication: HAEMORRHAGE INTRACRANIAL
     Dates: start: 19990615, end: 19990615
  4. CONTRAST MEDIA [Suspect]
     Indication: KIDNEY ANASTOMOSIS
     Dates: start: 20020423, end: 20020423
  5. PREDNISONE [Concomitant]
  6. LASIX [Concomitant]
  7. OMNISCAN [Suspect]
     Indication: NUCLEAR MAGNETIC RESONANCE IMAGING
     Dates: start: 20011108, end: 20011108
  8. MAGNEVIST [Suspect]
     Indication: GAIT DISTURBANCE
     Dosage: ^14 ML AND 16 ML^
     Route: 042
     Dates: start: 20051215, end: 20051215
  9. MAGNEVIST [Suspect]
     Indication: HEADACHE
     Route: 042
     Dates: start: 20020326
  10. MAGNEVIST [Suspect]
     Indication: MULTIPLE MYELOMA
     Route: 042
     Dates: start: 20061211
  11. MAGNEVIST [Suspect]
     Route: 042
     Dates: start: 20050629, end: 20050629
  12. MAGNEVIST [Suspect]
     Route: 042
     Dates: start: 20041203, end: 20041203
  13. OPTIMARK [Suspect]
     Indication: NUCLEAR MAGNETIC RESONANCE IMAGING
  14. METOPROLOL [Concomitant]
     Dates: start: 20090101
  15. PROCRIT [Concomitant]
     Dates: start: 19990101
  16. SYNTHROID [Concomitant]
  17. OMNISCAN [Suspect]
     Indication: NUCLEAR MAGNETIC RESONANCE IMAGING ABDOMINAL
     Dates: start: 20000323, end: 20000323
  18. OXYCODONE HCL AND ACETAMINOPHEN [Concomitant]
  19. TIZANIDINE HCL [Concomitant]
  20. LOPRESSOR [Concomitant]
  21. KLONOPIN [Concomitant]
  22. MYCELEX [Concomitant]
  23. SODIUM BICARBONATE [Concomitant]
  24. MAGNEVIST [Suspect]
     Indication: NUCLEAR MAGNETIC RESONANCE IMAGING
     Route: 042
     Dates: start: 20020318, end: 20020318
  25. MAGNEVIST [Suspect]
     Indication: RENAL VEIN THROMBOSIS
     Route: 042
     Dates: start: 20010103, end: 20010103
  26. MULTIHANCE [Suspect]
     Indication: PAIN
     Dosage: ^17^
     Route: 042
     Dates: start: 20080325, end: 20080325
  27. IMMUNOSUPPRESSANTS [Concomitant]
  28. CONTRAST MEDIA [Suspect]
     Indication: MULTIPLE MYELOMA
     Dates: start: 19990915, end: 19990915
  29. OMNISCAN [Suspect]
     Indication: NUCLEAR MAGNETIC RESONANCE IMAGING BRAIN
     Dates: start: 19980601, end: 19980601
  30. NEPHROCAPS [Concomitant]
     Dates: start: 20090101
  31. FUROSEMIDE [Concomitant]
  32. THALOMID [Concomitant]
  33. ACYCLOVIR [Concomitant]
  34. MARINOL [Concomitant]
  35. CONTRAST MEDIA [Suspect]
     Indication: RENAL TRANSPLANT
     Dates: start: 20020423, end: 20020423
  36. RENAGEL [Concomitant]
     Dates: start: 19990101
  37. ZOFRAN [Concomitant]
  38. OXYCONTIN [Concomitant]
  39. PRILOSEC [Concomitant]
  40. RENAPHRO [Concomitant]
  41. OXYCODONE [Concomitant]
  42. ACETAMINOPHEN AND OXYCODONE HCL [Concomitant]
  43. MAGNEVIST [Suspect]
     Route: 042
     Dates: start: 20000830, end: 20000830
  44. MULTIHANCE [Suspect]
     Indication: NUCLEAR MAGNETIC RESONANCE IMAGING BRAIN
     Route: 042
     Dates: start: 20080111, end: 20080111
  45. CONTRAST MEDIA [Suspect]
     Indication: ANGIOGRAM
     Dates: start: 20000323, end: 20000323
  46. CONTRAST MEDIA [Suspect]
     Indication: ARTERIOGRAM RENAL
  47. ZETIA [Concomitant]
  48. AMITRIPTYLINE HCL [Concomitant]
  49. CLARITIN [Concomitant]
  50. OMNISCAN [Suspect]
     Indication: MULTIPLE MYELOMA
     Dates: start: 20010305, end: 20010305
  51. NEPHROVITE [Concomitant]
  52. MYCOPHENOLATE MOFETIL (CELLCEPT) [Concomitant]
  53. SENOKOT [Concomitant]
  54. IMITREX [Concomitant]
  55. MAGNEVIST [Suspect]
     Indication: RENAL FAILURE
     Route: 042
     Dates: start: 20040102, end: 20040102
  56. OMNISCAN [Suspect]
     Indication: DISEASE PROGRESSION
     Dates: start: 20011030, end: 20011030
  57. ROCALTROL [Concomitant]
  58. PHOSLO [Concomitant]
  59. NEURONTIN [Concomitant]
  60. DILANTIN [Concomitant]
  61. ATIVAN [Concomitant]
  62. LIPITOR [Concomitant]
  63. OMNISCAN [Suspect]
     Indication: HAEMORRHAGE INTRACRANIAL
     Route: 042
     Dates: start: 19970718, end: 19970718
  64. RENA-VITE [Concomitant]
  65. PROGRAF [Concomitant]
  66. ALUMINIUM OXIDE [Concomitant]
  67. GABAPENTIN [Concomitant]
  68. IMMUNE GLOBULIN NOS [Concomitant]
  69. ATENOLOL [Concomitant]
  70. PROCRIT [Concomitant]
  71. FAMVIR [Concomitant]
  72. MAGNEVIST [Suspect]
     Indication: BACK PAIN
     Route: 042
     Dates: start: 20021230, end: 20021230
  73. MAGNEVIST [Suspect]
     Indication: INTERVERTEBRAL DISC PROTRUSION
     Dates: start: 20020910, end: 20020910
  74. MAGNEVIST [Suspect]
     Dates: start: 20030813, end: 20030813
  75. MAGNEVIST [Suspect]
     Route: 042
     Dates: start: 20001221, end: 20001221
  76. MULTIHANCE [Suspect]
     Indication: NUCLEAR MAGNETIC RESONANCE IMAGING
     Route: 042
     Dates: start: 20080103, end: 20080103
  77. MULTIHANCE [Suspect]
     Indication: MUSCULAR WEAKNESS
     Route: 042
     Dates: start: 20080331, end: 20080331
  78. MULTIHANCE [Suspect]
     Indication: MULTIPLE MYELOMA
     Dates: start: 20090103, end: 20090103
  79. COUMADIN [Concomitant]
     Dates: start: 19990101
  80. RANITIDINE [Concomitant]
  81. CALCITRIOL [Concomitant]
  82. CHLORTHALIDONE [Concomitant]
  83. PAXIL [Concomitant]
  84. FOSAMAX [Concomitant]
  85. ZOLOFT [Concomitant]
  86. EPOGEN [Concomitant]

REACTIONS (1)
  - NEPHROGENIC SYSTEMIC FIBROSIS [None]
